FAERS Safety Report 12193978 (Version 1)
Quarter: 2016Q1

REPORT INFORMATION
  Report Type: Spontaneous
  Country: US (occurrence: None)
  Receive Date: 20160318
  Receipt Date: 20160318
  Transmission Date: 20160526
  Serious: Yes (Death)
  Sender: FDA-Public Use
  Company Number: None

PATIENT
  Age: 55 Year
  Sex: Female

DRUGS (27)
  1. NECON [Concomitant]
     Active Substance: ETHINYL ESTRADIOL\NORETHINDRONE
  2. HYDROCO/APAP [Concomitant]
     Active Substance: ACETAMINOPHEN\HYDROCODONE
  3. HYDROCO/APAP [Suspect]
     Active Substance: ACETAMINOPHEN\HYDROCODONE
  4. FORTEO [Suspect]
     Active Substance: TERIPARATIDE
     Indication: OSTEOPOROSIS
     Route: 058
     Dates: start: 20150904
  5. TRETINOIN. [Concomitant]
     Active Substance: TRETINOIN
  6. CETIRIZINE [Concomitant]
     Active Substance: CETIRIZINE HYDROCHLORIDE
  7. ONDANSETRON [Concomitant]
     Active Substance: ONDANSETRON
  8. HYDROXYCHLOR [Concomitant]
     Active Substance: HYDROXYCHLOROQUINE
  9. SPIRONOLACT [Concomitant]
  10. HYDROXICHLOR TAP [Concomitant]
  11. FLECTOR [Concomitant]
     Active Substance: DICLOFENAC EPOLAMINE
  12. METOCLOPRAM [Concomitant]
     Active Substance: METOCLOPRAMIDE
  13. OXYCODONE [Concomitant]
     Active Substance: OXYCODONE
  14. HYDROMORPHON [Concomitant]
     Active Substance: HYDROMORPHONE
  15. DICLOFENAC [Suspect]
     Active Substance: DICLOFENAC
  16. CEPHALEXIN. [Concomitant]
     Active Substance: CEPHALEXIN
  17. LYRICA [Concomitant]
     Active Substance: PREGABALIN
  18. NUVIGIL [Concomitant]
     Active Substance: ARMODAFINIL
  19. NYSTATIN. [Concomitant]
     Active Substance: NYSTATIN
  20. COSAMIN DS [Concomitant]
  21. CYMBALTA [Concomitant]
     Active Substance: DULOXETINE HYDROCHLORIDE
  22. AMITRIPTYLIN [Concomitant]
     Active Substance: AMITRIPTYLINE
  23. LUNESTA [Concomitant]
     Active Substance: ESZOPICLONE
  24. BUPROPION. [Concomitant]
     Active Substance: BUPROPION
  25. LOVAZA [Concomitant]
     Active Substance: OMEGA-3-ACID ETHYL ESTERS
  26. DICLOFENAC [Concomitant]
     Active Substance: DICLOFENAC
  27. FLUTICASONE [Concomitant]
     Active Substance: FLUTICASONE\FLUTICASONE PROPIONATE

REACTIONS (1)
  - Death [None]

NARRATIVE: CASE EVENT DATE: 201512
